FAERS Safety Report 18071535 (Version 1)
Quarter: 2020Q3

REPORT INFORMATION
  Report Type: Spontaneous
  Country: US (occurrence: US)
  Receive Date: 20200725
  Receipt Date: 20200725
  Transmission Date: 20201103
  Serious: No
  Sender: FDA-Public Use
  Company Number: None

PATIENT
  Sex: Female

DRUGS (1)
  1. NUCALA [Suspect]
     Active Substance: MEPOLIZUMAB
     Indication: ASTHMA
     Dosage: ?          OTHER FREQUENCY:EVERY 28 DAYS;OTHER ROUTE:UNDER THE SKIN?
     Route: 058
     Dates: start: 201909

REACTIONS (5)
  - Muscle spasms [None]
  - Drug ineffective [None]
  - Asthma [None]
  - Back pain [None]
  - Fatigue [None]
